FAERS Safety Report 18642056 (Version 3)
Quarter: 2021Q2

REPORT INFORMATION
  Report Type: Spontaneous
  Country: US (occurrence: US)
  Receive Date: 20201221
  Receipt Date: 20210419
  Transmission Date: 20210717
  Serious: No
  Sender: FDA-Public Use
  Company Number: US-BAYER-2020-282458

PATIENT
  Age: 25 Year
  Sex: Female

DRUGS (1)
  1. MIRENA [Suspect]
     Active Substance: LEVONORGESTREL
     Indication: CONTRACEPTION
     Dosage: 20 ?G PER DAY CONTINUOUSLY
     Route: 015
     Dates: start: 20201215, end: 20201215

REACTIONS (7)
  - Device use issue [None]
  - Presyncope [None]
  - Diarrhoea [None]
  - Procedural vomiting [None]
  - Complication of device insertion [None]
  - Procedural pain [None]
  - Post procedural discomfort [None]

NARRATIVE: CASE EVENT DATE: 20201215
